FAERS Safety Report 4778560-0 (Version None)
Quarter: 2005Q3

REPORT INFORMATION
  Report Type: 
  Country: None (occurrence: None)
  Receive Date: 20050922
  Receipt Date: 20050914
  Transmission Date: 20060218
  Serious: Yes (Other)
  Sender: FDA-Public Use
  Company Number: 2005128739

PATIENT
  Age: 25 Year
  Sex: Male
  Weight: 106.5953 kg

DRUGS (5)
  1. XANAX [Suspect]
     Indication: ANXIETY
     Dosage: 10 MG (1 IN 1 D), ORAL
     Route: 048
     Dates: start: 20000101
  2. LEXAPRO [Concomitant]
  3. LORAZEPAM [Concomitant]
  4. TEMAZEPAM [Concomitant]
  5. CLONIDINE [Concomitant]

REACTIONS (11)
  - ABNORMAL BEHAVIOUR [None]
  - AGGRESSION [None]
  - ANXIETY [None]
  - CONVULSION [None]
  - DIARRHOEA [None]
  - DRUG PRESCRIBING ERROR [None]
  - GRAND MAL CONVULSION [None]
  - HYPERHIDROSIS [None]
  - LOSS OF CONSCIOUSNESS [None]
  - MEMORY IMPAIRMENT [None]
  - MUSCLE SPASMS [None]
